FAERS Safety Report 5970112-X (Version None)
Quarter: 2008Q4

REPORT INFORMATION
  Report Type: 
  Country: None (occurrence: None)
  Receive Date: 20081126
  Receipt Date: 20081118
  Transmission Date: 20090506
  Serious: Yes (Death)
  Sender: FDA-Public Use
  Company Number: US-PFIZER INC-2008098037

PATIENT
  Sex: Male

DRUGS (2)
  1. SUTENT [Suspect]
     Indication: COLORECTAL CANCER METASTATIC
     Dates: start: 20080801
  2. DRUG, UNSPECIFIED [Concomitant]

REACTIONS (1)
  - DEATH [None]
